FAERS Safety Report 15560271 (Version 1)
Quarter: 2018Q4

REPORT INFORMATION
  Report Type: Other
  Country: IT (occurrence: IT)
  Receive Date: 20181029
  Receipt Date: 20181029
  Transmission Date: 20190205
  Serious: Yes (Hospitalization, Other)
  Sender: FDA-Public Use
  Company Number: IT-APOTEX-2018AP023445

PATIENT
  Age: 44 Year
  Sex: Male

DRUGS (3)
  1. XEPLION [Concomitant]
     Active Substance: PALIPERIDONE PALMITATE
     Indication: SCHIZOPHRENIA
     Dosage: 1 DF, UNK
     Route: 065
  2. QUETIAPINE. [Suspect]
     Active Substance: QUETIAPINE
     Indication: DRUG ABUSE
     Dosage: 4 DF, SINGLE
     Route: 048
     Dates: start: 20180823, end: 20180823
  3. CARBOLITHIUM [Concomitant]
     Active Substance: LITHIUM CARBONATE
     Indication: SCHIZOPHRENIA
     Dosage: 2 DF, UNK
     Route: 065

REACTIONS (4)
  - Sopor [Recovering/Resolving]
  - Toxicity to various agents [Recovering/Resolving]
  - Drug abuse [Unknown]
  - Psychomotor hyperactivity [Recovering/Resolving]

NARRATIVE: CASE EVENT DATE: 20180823
